FAERS Safety Report 24040061 (Version 1)
Quarter: 2024Q3

REPORT INFORMATION
  Report Type: Spontaneous
  Country: US (occurrence: US)
  Receive Date: 20240702
  Receipt Date: 20240702
  Transmission Date: 20241016
  Serious: Yes (Death, Other)
  Sender: AMGEN
  Company Number: US-AMGEN-USASP2024128088

PATIENT

DRUGS (1)
  1. BLINATUMOMAB [Suspect]
     Active Substance: BLINATUMOMAB
     Indication: Acute lymphocytic leukaemia
     Dosage: UNK
     Route: 065

REACTIONS (9)
  - Death [Fatal]
  - Procedural complication [Fatal]
  - Acute lymphocytic leukaemia recurrent [Unknown]
  - Embolism venous [Unknown]
  - Cardiotoxicity [Unknown]
  - Philadelphia chromosome positive [Unknown]
  - Liver function test abnormal [Unknown]
  - Minimal residual disease [Unknown]
  - Gene mutation [Unknown]
